FAERS Safety Report 11082132 (Version 1)
Quarter: 2015Q2

REPORT INFORMATION
  Report Type: Spontaneous
  Country: AU (occurrence: AU)
  Receive Date: 20150501
  Receipt Date: 20150501
  Transmission Date: 20150821
  Serious: Yes (Hospitalization, Other)
  Sender: FDA-Public Use
  Company Number: PHHY2015AU048803

PATIENT
  Age: 43 Year
  Sex: Male

DRUGS (2)
  1. METFORMIN HYDROCHLORIDE SANDOZ [Suspect]
     Active Substance: METFORMIN HYDROCHLORIDE
     Indication: DIABETES MELLITUS
     Dosage: 50 G
     Route: 065
  2. DIAZEPAM. [Concomitant]
     Active Substance: DIAZEPAM
     Indication: PRODUCT USED FOR UNKNOWN INDICATION
     Dosage: 40 MG,
     Route: 065

REACTIONS (4)
  - Renal impairment [Unknown]
  - Lactic acidosis [Unknown]
  - Overdose [Unknown]
  - Hyperkalaemia [Unknown]
